FAERS Safety Report 16617746 (Version 1)
Quarter: 2019Q3

REPORT INFORMATION
  Report Type: Spontaneous
  Country: US (occurrence: US)
  Receive Date: 20190611
  Receipt Date: 20190611
  Transmission Date: 20191004
  Serious: Yes (Hospitalization, Other)
  Sender: FDA-Public Use
  Company Number: None

PATIENT
  Age: 71 Year
  Sex: Male
  Weight: 61 kg

DRUGS (2)
  1. NANOLIPOSOMAL IRINOTECAN 132.4MG [Suspect]
     Active Substance: IRINOTECAN
     Indication: GLIOBLASTOMA
     Dosage: ?          OTHER FREQUENCY:Q 2 WEEKS;?
     Dates: start: 20190412
  2. TEMOZOLOMIDE 100MG [Suspect]
     Active Substance: TEMOZOLOMIDE

REACTIONS (2)
  - Febrile neutropenia [None]
  - Therapy cessation [None]

NARRATIVE: CASE EVENT DATE: 20190503
